FAERS Safety Report 11697282 (Version 1)
Quarter: 2015Q4

REPORT INFORMATION
  Report Type: Report from Study
  Country: CA (occurrence: CA)
  Receive Date: 20151104
  Receipt Date: 20151104
  Transmission Date: 20160304
  Serious: Yes (Other)
  Sender: FDA-Public Use
  Company Number: CA-JNJFOC-20151023090

PATIENT
  Age: 68 Year
  Sex: Female
  Weight: 60 kg

DRUGS (1)
  1. STELARA [Suspect]
     Active Substance: USTEKINUMAB
     Indication: PSORIASIS
     Dosage: 0, 4 WEEK
     Route: 058
     Dates: start: 20150618, end: 20151028

REACTIONS (3)
  - Cystitis [Unknown]
  - Infected bite [Unknown]
  - Cellulitis [Unknown]

NARRATIVE: CASE EVENT DATE: 20150714
